FAERS Safety Report 7544654-X (Version None)
Quarter: 2011Q2

REPORT INFORMATION
  Report Type: 
  Country: None (occurrence: None)
  Receive Date: 20110614
  Receipt Date: 20110606
  Transmission Date: 20111010
  Serious: No
  Sender: FDA-Public Use
  Company Number: US-BIOGENIDEC-2011BI016407

PATIENT
  Sex: Female

DRUGS (2)
  1. TYSABRI [Suspect]
     Indication: MULTIPLE SCLEROSIS
     Route: 042
     Dates: start: 20090409, end: 20110101
  2. AVONEX [Concomitant]
     Indication: MULTIPLE SCLEROSIS
     Route: 030
     Dates: start: 20071013

REACTIONS (8)
  - DECUBITUS ULCER [None]
  - MULTIPLE SCLEROSIS [None]
  - FATIGUE [None]
  - MUSCULOSKELETAL STIFFNESS [None]
  - CENTRAL NERVOUS SYSTEM LESION [None]
  - STRESS [None]
  - PAIN [None]
  - DRUG INEFFECTIVE [None]
